FAERS Safety Report 7657219-6 (Version None)
Quarter: 2011Q3

REPORT INFORMATION
  Report Type: 
  Country: None (occurrence: None)
  Receive Date: 20110804
  Receipt Date: 20110725
  Transmission Date: 20111222
  Serious: Yes (Hospitalization)
  Sender: FDA-Public Use
  Company Number: US-BAYER-201037033NA

PATIENT
  Sex: Female
  Weight: 59 kg

DRUGS (5)
  1. NAPROXEN (ALEVE) [Concomitant]
  2. YAZ [Suspect]
     Indication: PRODUCT USED FOR UNKNOWN INDICATION
  3. AZITHROMYCIN [Concomitant]
  4. HYDROCODONE BITARTRATE AND ACETAMINOPHEN [Concomitant]
     Dosage: UNK
  5. IBUPROFEN [Concomitant]
     Dosage: UNK
     Dates: start: 20001029

REACTIONS (3)
  - PULMONARY EMBOLISM [None]
  - PAIN [None]
  - ALOPECIA [None]
